FAERS Safety Report 10444628 (Version 1)
Quarter: 2014Q3

REPORT INFORMATION
  Report Type: Spontaneous
  Country: JP (occurrence: JP)
  Receive Date: 20140910
  Receipt Date: 20140910
  Transmission Date: 20150326
  Serious: No
  Sender: FDA-Public Use
  Company Number: PHHY2013JP162441

PATIENT
  Age: 70 Year
  Sex: Male

DRUGS (1)
  1. TASIGNA [Suspect]
     Active Substance: NILOTINIB
     Dosage: 800 MG, DAILY
     Dates: start: 20130410

REACTIONS (4)
  - Platelet count decreased [Unknown]
  - Electrocardiogram QT prolonged [Unknown]
  - Haemoglobin decreased [Recovering/Resolving]
  - Blood bilirubin increased [Unknown]
